FAERS Safety Report 10254065 (Version 1)
Quarter: 2014Q2

REPORT INFORMATION
  Report Type: Spontaneous
  Country: CN (occurrence: CN)
  Receive Date: 20140623
  Receipt Date: 20140623
  Transmission Date: 20141212
  Serious: Yes (Hospitalization)
  Sender: FDA-Public Use
  Company Number: CN-009507513-1406CHN009743

PATIENT
  Age: 67 Year
  Sex: Female
  Weight: 62 kg

DRUGS (5)
  1. CLARITYNE [Suspect]
     Indication: DERMATITIS ALLERGIC
     Dosage: 10MG, QD
     Route: 041
     Dates: start: 20130611, end: 20130618
  2. AZITHROMYCIN [Suspect]
     Indication: BRONCHITIS
     Dosage: 0.5G, QD
     Route: 041
     Dates: start: 20130611, end: 20130618
  3. OMEPRAZOLE [Suspect]
     Indication: BRONCHITIS
     Dosage: 40 MG, QD
     Route: 041
     Dates: start: 20130611, end: 20130618
  4. VITAMINS (UNSPECIFIED) [Suspect]
     Indication: BRONCHITIS
     Dosage: 10 ML, QD
     Route: 041
     Dates: start: 20130611, end: 20130618
  5. DIPHENHYDRAMINE HYDROCHLORIDE [Concomitant]
     Indication: DERMATITIS ALLERGIC
     Dosage: 20 MG, QD
     Route: 030
     Dates: start: 20130611, end: 20130618

REACTIONS (1)
  - Hepatic enzyme increased [Unknown]
